FAERS Safety Report 26076946 (Version 1)
Quarter: 2025Q4

REPORT INFORMATION
  Report Type: Spontaneous
  Country: JP (occurrence: JP)
  Receive Date: 20251121
  Receipt Date: 20251121
  Transmission Date: 20260118
  Serious: Yes (Hospitalization, Other)
  Sender: INSUD PHARMA
  Company Number: JP-INSUD PHARMA-2511JP09533

PATIENT

DRUGS (4)
  1. BETAMETHASONE [Suspect]
     Active Substance: BETAMETHASONE
     Indication: Skin disorder
     Dosage: 2 MG/DAY
     Route: 048
  2. BETAMETHASONE [Suspect]
     Active Substance: BETAMETHASONE
     Indication: Behcet^s syndrome
  3. INFLIXIMAB [Suspect]
     Active Substance: INFLIXIMAB
     Indication: Behcet^s syndrome
     Dosage: 5 MG/KG EVERY 8 WEEKS
     Route: 065
  4. AZATHIOPRINE [Suspect]
     Active Substance: AZATHIOPRINE
     Indication: Behcet^s syndrome
     Dosage: 50 MG/DAY
     Route: 065

REACTIONS (15)
  - Disseminated nocardiosis [Recovered/Resolved]
  - Septic shock [Recovered/Resolved]
  - Disseminated intravascular coagulation [Recovered/Resolved]
  - Pyrexia [Recovered/Resolved]
  - Oropharyngeal pain [Recovered/Resolved]
  - Hypotension [Recovered/Resolved]
  - Leukocytosis [Recovered/Resolved]
  - Hepatic enzyme increased [Recovered/Resolved]
  - Renal impairment [Recovered/Resolved]
  - Hyponatraemia [Recovered/Resolved]
  - Hypochloraemia [Recovered/Resolved]
  - Hypokalaemia [Recovered/Resolved]
  - Lung abscess [Recovered/Resolved]
  - Liver abscess [Recovered/Resolved]
  - Splenic abscess [Recovered/Resolved]
